FAERS Safety Report 5052826-1 (Version None)
Quarter: 2006Q3

REPORT INFORMATION
  Report Type: 
  Country: None (occurrence: None)
  Receive Date: 20060717
  Receipt Date: 20060706
  Transmission Date: 20061208
  Serious: Yes (Hospitalization)
  Sender: FDA-Public Use
  Company Number: JP-JNJFOC-20060306514

PATIENT
  Sex: Female
  Weight: 80 kg

DRUGS (12)
  1. REMICADE [Suspect]
  2. REMICADE [Suspect]
  3. REMICADE [Suspect]
  4. REMICADE [Suspect]
  5. REMICADE [Suspect]
  6. REMICADE [Suspect]
  7. REMICADE [Suspect]
  8. REMICADE [Suspect]
     Indication: CROHN'S DISEASE
  9. PENTASA [Concomitant]
     Indication: CROHN'S DISEASE
     Route: 048
  10. LEUKERIN [Concomitant]
     Indication: CROHN'S DISEASE
     Route: 048
  11. GASTROM [Concomitant]
     Indication: PROPHYLAXIS
     Route: 048
  12. MUCOSTA [Concomitant]
     Indication: PROPHYLAXIS
     Route: 048

REACTIONS (1)
  - PUSTULAR PSORIASIS [None]
